FAERS Safety Report 5224605-3 (Version None)
Quarter: 2007Q1

REPORT INFORMATION
  Report Type: 
  Country: None (occurrence: None)
  Receive Date: 20061201
  Receipt Date: 20060909
  Transmission Date: 20070707
  Serious: No
  Sender: FDA-Public Use
  Company Number: 2006PV020945

PATIENT
  Age: 59 Year
  Sex: Female
  Weight: 77.1115 kg

DRUGS (4)
  1. BYETTA [Suspect]
     Indication: DIABETES MELLITUS NON-INSULIN-DEPENDENT
     Dosage: 5 MCG;BID;SC
     Route: 058
     Dates: start: 20060908, end: 20060908
  2. ACTOPLUS MET 15/500 [Concomitant]
  3. LANTUS [Concomitant]
  4. HUMALOG [Concomitant]

REACTIONS (6)
  - DIARRHOEA [None]
  - EYE SWELLING [None]
  - HYPOAESTHESIA [None]
  - PERIORBITAL HAEMATOMA [None]
  - SWELLING FACE [None]
  - VOMITING [None]
